FAERS Safety Report 10636673 (Version 1)
Quarter: 2014Q4

REPORT INFORMATION
  Report Type: Spontaneous
  Country: IT (occurrence: IT)
  Receive Date: 20141208
  Receipt Date: 20141208
  Transmission Date: 20150529
  Serious: Yes (Hospitalization)
  Sender: FDA-Public Use
  Company Number: IT-TEVA-525547ISR

PATIENT
  Age: 65 Year
  Sex: Male
  Weight: 70 kg

DRUGS (3)
  1. GABAPENTIN. [Suspect]
     Active Substance: GABAPENTIN
     Indication: PAIN
     Dosage: 200 MG DAILY
     Route: 048
     Dates: start: 20140905, end: 20140915
  2. VERSATIS - 5% CEROTTO MEDICATO - GRUNENTHAL ITALIA S.R.L [Suspect]
     Active Substance: LIDOCAINE
     Indication: PAIN
     Dosage: 1 DF DAILY. MEDICATED PLASTER.
     Route: 003
     Dates: start: 20140905, end: 20140915
  3. NORMAST [Concomitant]
     Dosage: 1800 MILLIGRAM DAILY; 3 SACHETS DAILY
     Route: 048
     Dates: start: 20140905, end: 20140915

REACTIONS (5)
  - Tremor [Recovered/Resolved]
  - Coma [Recovered/Resolved]
  - Disorientation [Recovered/Resolved]
  - Hallucination [Recovered/Resolved]
  - Somnolence [Recovered/Resolved]

NARRATIVE: CASE EVENT DATE: 20140909
